FAERS Safety Report 8512880-9 (Version None)
Quarter: 2012Q3

REPORT INFORMATION
  Report Type: 
  Country: None (occurrence: None)
  Receive Date: 20120716
  Receipt Date: 20120710
  Transmission Date: 20120928
  Serious: Yes (Other)
  Sender: FDA-Public Use
  Company Number: US-009507513-1207USA002428

PATIENT

DRUGS (1)
  1. ZOCOR [Suspect]
     Dosage: UNK
     Dates: start: 20100101, end: 20110701

REACTIONS (2)
  - RHABDOMYOLYSIS [None]
  - MUSCLE INJURY [None]
